FAERS Safety Report 15123971 (Version 1)
Quarter: 2018Q3

REPORT INFORMATION
  Report Type: Report from Study
  Country: US (occurrence: US)
  Receive Date: 20180710
  Receipt Date: 20180710
  Transmission Date: 20181010
  Serious: Yes (Other)
  Sender: FDA-Public Use
  Company Number: US-ROCHE-2144986

PATIENT
  Age: 52 Year
  Sex: Male
  Weight: 110.78 kg

DRUGS (32)
  1. LEUCOVORIN. [Suspect]
     Active Substance: LEUCOVORIN
     Indication: COLON CANCER
     Route: 065
     Dates: start: 20161128
  2. COMPAZINE [Concomitant]
     Active Substance: PROCHLORPERAZINE MALEATE
     Route: 065
     Dates: start: 20171002
  3. DILAUDID [Concomitant]
     Active Substance: HYDROMORPHONE HYDROCHLORIDE
     Indication: PAIN
     Dosage: AS NEEDED
     Route: 065
  4. CLINDAMYCIN. [Concomitant]
     Active Substance: CLINDAMYCIN
     Route: 061
  5. VALACYCLOVIR [Concomitant]
     Active Substance: VALACYCLOVIR HYDROCHLORIDE
     Route: 048
  6. ATORVASTATIN [Concomitant]
     Active Substance: ATORVASTATIN
     Route: 048
  7. BEVACIZUMAB. [Suspect]
     Active Substance: BEVACIZUMAB
     Indication: HEPATIC CANCER
  8. IRINOTECAN [Suspect]
     Active Substance: IRINOTECAN
     Indication: COLON CANCER
     Route: 065
     Dates: start: 20161128
  9. GABAPENTIN. [Concomitant]
     Active Substance: GABAPENTIN
     Route: 065
     Dates: start: 20180619
  10. IMODIUM [Concomitant]
     Active Substance: LOPERAMIDE HYDROCHLORIDE
     Dosage: 1?2 CAPSULE AS NEEDED,
     Route: 065
  11. ONDANSETRON [Concomitant]
     Active Substance: ONDANSETRON
     Route: 048
  12. VITAMIN B?COMPLEX FORTE [Concomitant]
     Route: 065
  13. PREDNISONE. [Concomitant]
     Active Substance: PREDNISONE
     Route: 048
  14. LOPERAMIDE [Concomitant]
     Active Substance: LOPERAMIDE
     Route: 065
  15. BEVACIZUMAB. [Suspect]
     Active Substance: BEVACIZUMAB
     Indication: COLON CANCER
     Route: 065
     Dates: start: 20161128
  16. FLUOROURACIL. [Suspect]
     Active Substance: FLUOROURACIL
     Indication: COLON CANCER
     Route: 040
     Dates: start: 20161128
  17. AFINITOR [Suspect]
     Active Substance: EVEROLIMUS
     Indication: PRODUCT USED FOR UNKNOWN INDICATION
     Route: 048
     Dates: start: 20180507
  18. AFINITOR [Suspect]
     Active Substance: EVEROLIMUS
     Route: 048
  19. MEKINIST [Suspect]
     Active Substance: TRAMETINIB DIMETHYL SULFOXIDE
     Indication: PRODUCT USED FOR UNKNOWN INDICATION
     Route: 048
     Dates: start: 20180504
  20. ZOLOFT [Concomitant]
     Active Substance: SERTRALINE HYDROCHLORIDE
     Route: 048
     Dates: start: 20180320
  21. DEXAMETHASONE. [Concomitant]
     Active Substance: DEXAMETHASONE
     Route: 065
     Dates: start: 20180402
  22. FLUOROURACIL. [Suspect]
     Active Substance: FLUOROURACIL
     Indication: HEPATIC CANCER
     Route: 042
  23. IRINOTECAN [Suspect]
     Active Substance: IRINOTECAN
     Indication: HEPATIC CANCER
  24. CYMBALTA [Concomitant]
     Active Substance: DULOXETINE HYDROCHLORIDE
     Route: 065
     Dates: start: 20180320
  25. XARELTO [Concomitant]
     Active Substance: RIVAROXABAN
     Route: 065
     Dates: start: 20180320
  26. COTELLIC [Suspect]
     Active Substance: COBIMETINIB
     Indication: COLON CANCER
     Dosage: 3 TABLETS DAILY 1?21 DAYS THEN 7 DAYS OFF
     Route: 048
     Dates: start: 20180503
  27. COTELLIC [Suspect]
     Active Substance: COBIMETINIB
     Indication: HEPATIC CANCER
     Route: 048
     Dates: start: 20180510
  28. NYSTATIN. [Concomitant]
     Active Substance: NYSTATIN
     Route: 048
  29. LEUCOVORIN. [Suspect]
     Active Substance: LEUCOVORIN
     Indication: HEPATIC CANCER
  30. ZOLOFT [Concomitant]
     Active Substance: SERTRALINE HYDROCHLORIDE
     Route: 048
  31. ZOFRAN [Concomitant]
     Active Substance: ONDANSETRON HYDROCHLORIDE
     Route: 065
  32. VALTREX [Concomitant]
     Active Substance: VALACYCLOVIR HYDROCHLORIDE
     Route: 065

REACTIONS (17)
  - Diarrhoea [Unknown]
  - Acne [Recovered/Resolved]
  - Mucosal inflammation [Recovered/Resolved]
  - Pain [Unknown]
  - Intentional product use issue [Unknown]
  - Off label use [Unknown]
  - Rectal haemorrhage [Unknown]
  - Erythema multiforme [Unknown]
  - Fatigue [Unknown]
  - Joint swelling [Recovered/Resolved]
  - Back pain [Unknown]
  - Oral pain [Unknown]
  - Rash [Recovered/Resolved]
  - Discomfort [Unknown]
  - Pulmonary embolism [Unknown]
  - Epistaxis [Unknown]
  - Herpes zoster [Unknown]

NARRATIVE: CASE EVENT DATE: 20180510
